FAERS Safety Report 25790979 (Version 1)
Quarter: 2025Q3

REPORT INFORMATION
  Report Type: Spontaneous
  Country: US (occurrence: None)
  Receive Date: 20250910
  Receipt Date: 20250910
  Transmission Date: 20251021
  Serious: No
  Sender: FDA-CTU
  Company Number: None

PATIENT
  Age: 81 Year
  Sex: Male
  Weight: 73.48 kg

DRUGS (6)
  1. ELIQUIS [Suspect]
     Active Substance: APIXABAN
  2. LATANOPROST [Concomitant]
     Active Substance: LATANOPROST
  3. DEVICE [Concomitant]
     Active Substance: DEVICE
  4. VITAMINS [Concomitant]
     Active Substance: VITAMINS
  5. MINERALS\VITAMINS [Concomitant]
     Active Substance: MINERALS\VITAMINS
  6. JOINT HEALTH [Concomitant]
     Active Substance: AMINO ACIDS\BARLEY MALT

REACTIONS (1)
  - Product dispensing error [None]

NARRATIVE: CASE EVENT DATE: 20250611
